FAERS Safety Report 4385315-8 (Version None)
Quarter: 2004Q2

REPORT INFORMATION
  Report Type: 
  Country: None (occurrence: None)
  Receive Date: 20040622
  Receipt Date: 20040608
  Transmission Date: 20050107
  Serious: Yes (Hospitalization)
  Sender: FDA-Public Use
  Company Number: US-JNJFOC-20040200082

PATIENT
  Age: 51 Year
  Sex: Female

DRUGS (5)
  1. REMICADE [Suspect]
     Indication: CROHN'S DISEASE
     Dosage: 5 MG/KG, INTRAVENOUS
     Route: 042
     Dates: start: 20031201
  2. REMICADE [Suspect]
     Indication: CROHN'S DISEASE
     Dosage: 5 MG/KG, INTRAVENOUS
     Route: 042
     Dates: start: 20040201
  3. SULFASALAZINE [Suspect]
     Indication: CROHN'S DISEASE
     Dates: start: 19930101, end: 20031201
  4. PREDNISONE TAB [Concomitant]
  5. COLAZAL (BALSALAZIDE SODIUM) [Concomitant]

REACTIONS (15)
  - ATELECTASIS [None]
  - CELLULITIS [None]
  - CONDITION AGGRAVATED [None]
  - DIARRHOEA HAEMORRHAGIC [None]
  - EOSINOPHILIA [None]
  - FAECAL VOLUME DECREASED [None]
  - FLATULENCE [None]
  - HEADACHE [None]
  - IRON DEFICIENCY ANAEMIA [None]
  - LEUKOCYTOSIS [None]
  - PNEUMONIA [None]
  - PULMONARY FIBROSIS [None]
  - SALMONELLA BACTERAEMIA [None]
  - THROMBOCYTHAEMIA [None]
  - URINARY TRACT INFECTION [None]
